FAERS Safety Report 9749490 (Version 1)
Quarter: 2013Q4

REPORT INFORMATION
  Report Type: Spontaneous
  Country: FR (occurrence: FR)
  Receive Date: 20131212
  Receipt Date: 20131212
  Transmission Date: 20140711
  Serious: Yes (Hospitalization)
  Sender: FDA-Public Use
  Company Number: FR-PFIZER INC-2013351793

PATIENT
  Age: 80 Year
  Sex: Female

DRUGS (13)
  1. ZOLOFT [Suspect]
     Dosage: 50 MG, DAILY
     Route: 048
     Dates: start: 20130910, end: 20130920
  2. ZOLOFT [Interacting]
     Dosage: 50 MG, DAILY
     Route: 048
     Dates: start: 2013
  3. CALTRATE 600 + VITAMIN D [Suspect]
     Dosage: 600 MG, 2X/DAY
     Route: 048
     Dates: end: 20130920
  4. CALTRATE 600 + VITAMIN D [Suspect]
     Dosage: 1200 MG, DAILY
     Route: 048
     Dates: start: 2013
  5. CARDENSIEL [Suspect]
     Indication: HYPERTENSION
     Dosage: 10 MG, DAILY
     Route: 048
     Dates: end: 20130920
  6. ZOPICLONE [Suspect]
     Dosage: 7.5 MG, DAILY
     Route: 048
     Dates: end: 20130920
  7. ZOPICLONE [Suspect]
     Dosage: 7.5 MG, DAILY
     Route: 048
     Dates: start: 2013
  8. MOPRAL [Interacting]
     Dosage: 20 MG, DAILY
     Route: 048
     Dates: end: 20130920
  9. BIPRETERAX [Interacting]
     Indication: HYPERTENSION
     Dosage: 1 DF, DAILY
     Route: 048
     Dates: end: 20130920
  10. LERCAN [Concomitant]
     Indication: HYPERTENSION
     Dosage: 20 MG, DAILY
     Route: 048
     Dates: end: 20130920
  11. PRAVASTATIN ALTER [Concomitant]
     Dosage: 20 MG, DAILY
     Route: 048
     Dates: end: 20130920
  12. PRAVASTATIN ALTER [Concomitant]
     Dosage: 20 MG, DAILY
     Route: 048
     Dates: start: 20130930
  13. KARDEGIC [Concomitant]
     Dosage: 75 MG, DAILY
     Route: 048

REACTIONS (2)
  - Drug interaction [Recovered/Resolved]
  - Inappropriate antidiuretic hormone secretion [Recovered/Resolved]
